FAERS Safety Report 12426617 (Version 6)
Quarter: 2017Q1

REPORT INFORMATION
  Report Type: Report from Study
  Country: CA (occurrence: CA)
  Receive Date: 20160601
  Receipt Date: 20170329
  Transmission Date: 20170428
  Serious: Yes (Other)
  Sender: FDA-Public Use
  Company Number: PHHY2016CA073927

PATIENT
  Age: 36 Year
  Sex: Female

DRUGS (1)
  1. GILENYA [Suspect]
     Active Substance: FINGOLIMOD HYDROCHLORIDE
     Indication: MULTIPLE SCLEROSIS
     Dosage: QD
     Route: 048
     Dates: start: 20160525

REACTIONS (28)
  - Visual acuity reduced [Unknown]
  - Visual impairment [Recovered/Resolved]
  - Photophobia [Unknown]
  - Vitreous floaters [Recovered/Resolved]
  - Fatigue [Unknown]
  - Palpitations [Unknown]
  - Malaise [Unknown]
  - Dizziness [Unknown]
  - Visual impairment [Unknown]
  - Dizziness postural [Unknown]
  - Nausea [Recovered/Resolved]
  - Retinal degeneration [Unknown]
  - Non-cardiac chest pain [Recovered/Resolved]
  - Vision blurred [Unknown]
  - Back pain [Recovered/Resolved]
  - Loss of consciousness [Recovered/Resolved]
  - Chest pain [Recovered/Resolved]
  - Chills [Recovered/Resolved]
  - Presyncope [Unknown]
  - Asthenia [Recovered/Resolved]
  - Diarrhoea [Recovered/Resolved]
  - Balance disorder [Unknown]
  - Photosensitivity reaction [Unknown]
  - Palpitations [Recovered/Resolved]
  - Vitreous floaters [Unknown]
  - General physical health deterioration [Recovered/Resolved]
  - Hypoaesthesia [Recovered/Resolved]
  - Vomiting [Recovered/Resolved]

NARRATIVE: CASE EVENT DATE: 20160525
